FAERS Safety Report 8153999-4 (Version None)
Quarter: 2012Q1

REPORT INFORMATION
  Report Type: 
  Country: None (occurrence: None)
  Receive Date: 20120221
  Receipt Date: 20120221
  Transmission Date: 20120608
  Serious: Yes (Other)
  Sender: FDA-Public Use
  Company Number: None

PATIENT
  Age: 59 Year
  Sex: Male
  Weight: 86.182 kg

DRUGS (1)
  1. PHENERGAN [Suspect]
     Indication: INSOMNIA
     Dosage: 25 TO 50 MG
     Route: 048
     Dates: start: 20110715, end: 20120217

REACTIONS (14)
  - MUSCLE TWITCHING [None]
  - BRADYCARDIA [None]
  - CONSTIPATION [None]
  - FEELING ABNORMAL [None]
  - TINNITUS [None]
  - DYSPHORIA [None]
  - ABDOMINAL DISTENSION [None]
  - DRUG EFFECT DECREASED [None]
  - OTITIS EXTERNA [None]
  - AGITATION [None]
  - MUSCLE SPASMS [None]
  - INSOMNIA [None]
  - OFF LABEL USE [None]
  - NERVOUS SYSTEM DISORDER [None]
